FAERS Safety Report 5738291-7 (Version None)
Quarter: 2008Q2

REPORT INFORMATION
  Report Type: 
  Country: None (occurrence: None)
  Receive Date: 20080513
  Receipt Date: 20080506
  Transmission Date: 20081010
  Serious: Yes (Death, Other)
  Sender: FDA-Public Use
  Company Number: 163-20785-08030477

PATIENT
  Age: 79 Year
  Sex: Male

DRUGS (2)
  1. THALOMID [Suspect]
     Indication: MYELODYSPLASTIC SYNDROME
     Dosage: 200 MG, 4 IN 1 D, ORAL
     Route: 048
     Dates: start: 20070801, end: 20070101
  2. TRANSFUSION (BLOOD AND RELATED PRODUCTS) [Concomitant]

REACTIONS (4)
  - DISEASE PROGRESSION [None]
  - HAEMORRHAGIC STROKE [None]
  - HYPERTENSION [None]
  - MYELODYSPLASTIC SYNDROME [None]
